FAERS Safety Report 9133624 (Version 1)
Quarter: 2013Q1

REPORT INFORMATION
  Report Type: Spontaneous
  Country: NL (occurrence: NL)
  Receive Date: 20130125
  Receipt Date: 20130125
  Transmission Date: 20140127
  Serious: Yes (Other)
  Sender: FDA-Public Use
  Company Number: NL-B.I. PHARMACEUTICALS,INC./RIDGEFIELD-2013-BI-02227YA

PATIENT
  Sex: Male
  Weight: 87 kg

DRUGS (6)
  1. TAMSULOSIN [Suspect]
     Indication: BENIGN PROSTATIC HYPERPLASIA
     Dosage: 0.4 MG
     Route: 065
     Dates: start: 20121102, end: 20130102
  2. TAMSULOSIN [Suspect]
     Indication: HYPERTONIC BLADDER
  3. METFORMIN [Concomitant]
     Dosage: 1000 MG
     Dates: start: 2011
  4. ACETYLSALICYLZUUR CARDIO [Concomitant]
     Dosage: 80 MG
     Dates: start: 2011
  5. OMEPRAZOLE MSR [Concomitant]
     Dosage: 40 MG
     Dates: start: 2011
  6. INEGY [Concomitant]
     Dates: start: 2011

REACTIONS (1)
  - Phimosis [Unknown]
